FAERS Safety Report 18783517 (Version 1)
Quarter: 2021Q1

REPORT INFORMATION
  Report Type: Spontaneous
  Country: US (occurrence: US)
  Receive Date: 20210125
  Receipt Date: 20210125
  Transmission Date: 20210419
  Serious: No
  Sender: FDA-Public Use
  Company Number: US-PFIZER INC-2021044747

PATIENT
  Age: 71 Year
  Sex: Female

DRUGS (1)
  1. IBRANCE [Suspect]
     Active Substance: PALBOCICLIB
     Indication: BREAST CANCER FEMALE
     Dosage: 75 MG, DAILY
     Dates: start: 20200814

REACTIONS (5)
  - Breast discomfort [Unknown]
  - Skin exfoliation [Unknown]
  - Dry skin [Unknown]
  - Breast swelling [Unknown]
  - Pruritus [Unknown]

NARRATIVE: CASE EVENT DATE: 202101
